FAERS Safety Report 4975728-5 (Version None)
Quarter: 2006Q1

REPORT INFORMATION
  Report Type: 
  Country: None (occurrence: None)
  Receive Date: 20060222
  Receipt Date: 20051114
  Transmission Date: 20060701
  Serious: Yes (Other)
  Sender: FDA-Public Use
  Company Number: HQWYE594417NOV05

PATIENT
  Age: 53 Year
  Sex: Female

DRUGS (6)
  1. PROTONIX [Suspect]
     Indication: GASTROOESOPHAGEAL REFLUX DISEASE
  2. LECITHIN (LECITHIN) [Suspect]
     Indication: AMNESIA
  3. LEXAPRO [Suspect]
     Indication: DEPRESSION
     Dosage: 10 MG 1X PER 1 DAY, ORAL
     Route: 048
     Dates: start: 20050901, end: 20051001
  4. LEXAPRO [Suspect]
     Indication: DEPRESSION
     Dosage: 10 MG 1X PER 1 DAY, ORAL
     Route: 048
     Dates: start: 20051014, end: 20051021
  5. PREMARIN [Concomitant]
  6. MULTIVITAMINS, PLAIN (MULTIVITAMINS, PLAIN) [Concomitant]

REACTIONS (2)
  - DRUG INTERACTION [None]
  - HEADACHE [None]
